FAERS Safety Report 5832877-7 (Version None)
Quarter: 2008Q3

REPORT INFORMATION
  Report Type: 
  Country: None (occurrence: None)
  Receive Date: 20080804
  Receipt Date: 20080723
  Transmission Date: 20090109
  Serious: Yes (Death, Other)
  Sender: FDA-Public Use
  Company Number: ES-PFIZER INC-2008063889

PATIENT
  Age: 43 Year
  Sex: Male

DRUGS (3)
  1. PREDNISOLONE [Suspect]
  2. MYCOPHENOLATE MOFETIL [Suspect]
  3. TACROLIMUS [Suspect]

REACTIONS (1)
  - METASTASES TO LUNG [None]
